FAERS Safety Report 10496683 (Version 1)
Quarter: 2014Q4

REPORT INFORMATION
  Report Type: Report from Study
  Country: GB (occurrence: GB)
  Receive Date: 20141006
  Receipt Date: 20141006
  Transmission Date: 20150528
  Serious: Yes (Hospitalization)
  Sender: FDA-Public Use
  Company Number: GB-AMGEN-GBRNI2014075790

PATIENT
  Age: 83 Year
  Sex: Female
  Weight: 90 kg

DRUGS (1)
  1. ETANERCEPT [Suspect]
     Active Substance: ETANERCEPT
     Indication: RHEUMATOID ARTHRITIS
     Dosage: 25 MG, 2 TIMES/WK
     Route: 065
     Dates: start: 20040729, end: 20050627

REACTIONS (1)
  - Mixed hepatocellular cholangiocarcinoma [Unknown]

NARRATIVE: CASE EVENT DATE: 20140714
